FAERS Safety Report 14448074 (Version 1)
Quarter: 2018Q1

REPORT INFORMATION
  Report Type: Report from Study
  Country: US (occurrence: US)
  Receive Date: 20180126
  Receipt Date: 20180126
  Transmission Date: 20180509
  Serious: Yes (Other)
  Sender: FDA-Public Use
  Company Number: PHEH2018US002597

PATIENT

DRUGS (2)
  1. OMNITROPE [Suspect]
     Active Substance: SOMATROPIN
     Indication: GROWTH HORMONE DEFICIENCY
     Dosage: 0.5 MG, QD
     Route: 058
  2. OMNITROPE [Suspect]
     Active Substance: SOMATROPIN
     Dosage: 0.8 MG, QD
     Route: 058

REACTIONS (7)
  - Diarrhoea [Unknown]
  - Intentional product misuse [Unknown]
  - Meniere^s disease [Unknown]
  - Irritable bowel syndrome [Unknown]
  - Benign prostatic hyperplasia [Unknown]
  - Vertigo [Unknown]
  - Dyspepsia [Unknown]
